FAERS Safety Report 7302430-7 (Version None)
Quarter: 2011Q1

REPORT INFORMATION
  Report Type: 
  Country: None (occurrence: None)
  Receive Date: 20110218
  Receipt Date: 20100302
  Transmission Date: 20110831
  Serious: No
  Sender: FDA-Public Use
  Company Number: US-ASTRAZENECA-2010SE09763

PATIENT
  Age: 70 Year
  Sex: Female

DRUGS (6)
  1. LEVOTHYROXINE SODIUM [Concomitant]
  2. FELODIPINE [Suspect]
     Route: 048
     Dates: start: 20090901
  3. LORAZEPAM [Concomitant]
  4. ACETYLSALICYLIC ACID [Concomitant]
  5. FELODIPINE [Suspect]
     Route: 048
  6. OMEPRAZOLE [Concomitant]

REACTIONS (7)
  - WEIGHT DECREASED [None]
  - HEADACHE [None]
  - FLATULENCE [None]
  - CONDITION AGGRAVATED [None]
  - DIZZINESS [None]
  - CONSTIPATION [None]
  - BACK PAIN [None]
